FAERS Safety Report 8615857 (Version 2)
Quarter: 2012Q4

REPORT INFORMATION
  Report Type: 
  Country: US (occurrence: US)
  Receive Date: 20120614
  Receipt Date: 20120927
  Transmission Date: 20130627
  Serious: No
  Sender: FDA-Public Use
  Company Number: US-AMGEN-USASP2012030385

PATIENT
  Age: 58 Year
  Sex: Female
  Weight: 49 kg

DRUGS (10)
  1. PROLIA [Suspect]
     Indication: OSTEOPOROSIS
     Dosage: 60 mg, q6mo
     Route: 058
     Dates: start: 201101
  2. MAGNESIUM [Concomitant]
     Dosage: UNK
  3. VITAMIN D [Concomitant]
     Dosage: UNK
  4. CALCIUM [Concomitant]
     Dosage: UNK
  5. FISH OIL [Concomitant]
     Dosage: UNK
  6. B12 [Concomitant]
     Dosage: UNK
  7. MULTIVITAMIN [Concomitant]
     Dosage: UNK
  8. ANTIHISTAMINES [Concomitant]
     Dosage: UNK
  9. PROTONIX [Concomitant]
     Dosage: UNK
  10. HORMONES [Concomitant]
     Dosage: UNK

REACTIONS (8)
  - Fall [Unknown]
  - Cartilage injury [Not Recovered/Not Resolved]
  - Intervertebral disc protrusion [Unknown]
  - Activities of daily living impaired [Not Recovered/Not Resolved]
  - Radiculopathy [Unknown]
  - Arthralgia [Not Recovered/Not Resolved]
  - Insomnia [Not Recovered/Not Resolved]
  - Myalgia [Not Recovered/Not Resolved]
